FAERS Safety Report 7380265-7 (Version None)
Quarter: 2011Q1

REPORT INFORMATION
  Report Type: 
  Country: None (occurrence: None)
  Receive Date: 20110329
  Receipt Date: 20110318
  Transmission Date: 20110831
  Serious: Yes (Other)
  Sender: FDA-Public Use
  Company Number: US-US-EMD SERONO, INC.-7037655

PATIENT
  Sex: Male

DRUGS (6)
  1. PEPCID [Concomitant]
     Indication: PROPHYLAXIS
  2. REBIF [Suspect]
     Route: 058
     Dates: start: 20110130, end: 20110101
  3. REBIF [Suspect]
     Indication: MULTIPLE SCLEROSIS
     Route: 058
     Dates: start: 20110101, end: 20110101
  4. UNSPECIFIED ANTIBIOTIC [Concomitant]
     Indication: SINUSITIS
  5. REBIF [Suspect]
     Route: 058
     Dates: start: 20110101, end: 20110301
  6. PREDNISONE [Concomitant]
     Indication: MULTIPLE SCLEROSIS

REACTIONS (7)
  - THIRST [None]
  - HEADACHE [None]
  - INFLUENZA LIKE ILLNESS [None]
  - RENAL IMPAIRMENT [None]
  - BLOOD PRESSURE INCREASED [None]
  - OPTIC NEURITIS [None]
  - DRY MOUTH [None]
